FAERS Safety Report 5464776-7 (Version None)
Quarter: 2007Q3

REPORT INFORMATION
  Report Type: 
  Country: None (occurrence: None)
  Receive Date: 20070921
  Receipt Date: 20070910
  Transmission Date: 20080115
  Serious: Yes (Other)
  Sender: FDA-Public Use
  Company Number: MX-PFIZER INC-2007072255

PATIENT
  Sex: Male
  Weight: 82 kg

DRUGS (4)
  1. EXUBERA [Suspect]
     Indication: DIABETES MELLITUS
     Route: 055
  2. METFORMIN [Concomitant]
     Route: 048
  3. PENTOXIFYLLINE [Concomitant]
     Route: 048
  4. VITAMIN CAP [Concomitant]
     Route: 048

REACTIONS (3)
  - FATIGUE [None]
  - HYPERGLYCAEMIA [None]
  - POLYURIA [None]
